FAERS Safety Report 6042017-X (Version None)
Quarter: 2009Q1

REPORT INFORMATION
  Report Type: 
  Country: None (occurrence: None)
  Receive Date: 20090116
  Receipt Date: 20090113
  Transmission Date: 20090719
  Serious: Yes (Hospitalization)
  Sender: FDA-Public Use
  Company Number: AU-MERCK-0901AUS00039

PATIENT
  Sex: Female
  Weight: 55 kg

DRUGS (1)
  1. VYTORIN [Suspect]
     Indication: METABOLIC DISORDER
     Route: 048
     Dates: end: 20080807

REACTIONS (4)
  - FATIGUE [None]
  - MUSCULAR WEAKNESS [None]
  - PAIN [None]
  - RHABDOMYOLYSIS [None]
